FAERS Safety Report 16371703 (Version 3)
Quarter: 2020Q4

REPORT INFORMATION
  Report Type: Spontaneous
  Country: JP (occurrence: JP)
  Receive Date: 20190530
  Receipt Date: 20201222
  Transmission Date: 20210113
  Serious: Yes (Other)
  Sender: FDA-Public Use
  Company Number: JP-BAYER-2019-097853

PATIENT
  Age: 13 Year
  Sex: Male

DRUGS (3)
  1. STIVARGA [Suspect]
     Active Substance: REGORAFENIB
     Indication: OSTEOSARCOMA RECURRENT
     Dosage: 80 MG, QD
     Route: 048
  2. STIVARGA [Suspect]
     Active Substance: REGORAFENIB
     Indication: OSTEOSARCOMA RECURRENT
     Dosage: 40 MG, QD
     Route: 048
  3. STIVARGA [Suspect]
     Active Substance: REGORAFENIB
     Indication: OSTEOSARCOMA RECURRENT
     Dosage: 120 MG, QD
     Route: 048

REACTIONS (7)
  - Product administered to patient of inappropriate age [None]
  - Cardiac failure congestive [Recovered/Resolved]
  - Fatigue [Recovered/Resolved]
  - Off label use [None]
  - Osteosarcoma recurrent [Unknown]
  - Product use in unapproved indication [None]
  - Blood pressure increased [None]
